FAERS Safety Report 6906030-X (Version None)
Quarter: 2010Q3

REPORT INFORMATION
  Report Type: 
  Country: None (occurrence: None)
  Receive Date: 20100803
  Receipt Date: 20100803
  Transmission Date: 20110219
  Serious: No
  Sender: FDA-Public Use
  Company Number: None

PATIENT
  Age: 30 Year
  Sex: Male

DRUGS (1)
  1. ATOMOXETINE HCL [Suspect]
     Indication: ATTENTION DEFICIT/HYPERACTIVITY DISORDER
     Dosage: 18 MG BID PO
     Route: 048
     Dates: start: 20100519, end: 20100524

REACTIONS (5)
  - EYE PRURITUS [None]
  - LACRIMATION INCREASED [None]
  - RASH PRURITIC [None]
  - RESPIRATORY DISTRESS [None]
  - URTICARIA [None]
